FAERS Safety Report 7515115-9 (Version None)
Quarter: 2011Q2

REPORT INFORMATION
  Report Type: 
  Country: None (occurrence: None)
  Receive Date: 20110601
  Receipt Date: 20110523
  Transmission Date: 20111010
  Serious: Yes (Hospitalization, Other)
  Sender: FDA-Public Use
  Company Number: SE-ASTRAZENECA-2009SE06207

PATIENT
  Age: 19 Year
  Sex: Male

DRUGS (3)
  1. SEROQUEL [Suspect]
     Dosage: 68 TABLETS (13,6 G)
     Route: 048
  2. ZOPICLONE [Concomitant]
  3. PROPIOMAZINE [Concomitant]

REACTIONS (3)
  - TOXICITY TO VARIOUS AGENTS [None]
  - TROPONIN INCREASED [None]
  - OVERDOSE [None]
